FAERS Safety Report 9021444 (Version 1)
Quarter: 2013Q1

REPORT INFORMATION
  Report Type: Spontaneous
  Country: US (occurrence: US)
  Receive Date: 20130119
  Receipt Date: 20130119
  Transmission Date: 20140127
  Serious: No
  Sender: FDA-Public Use
  Company Number: US-009507513-1301USA007775

PATIENT
  Sex: Male

DRUGS (8)
  1. PROPECIA [Suspect]
     Indication: ALOPECIA
     Dosage: 1 MG, QD
     Route: 048
     Dates: start: 1993
  2. DIOVAN [Concomitant]
  3. PREVACID [Concomitant]
  4. OMEPRAZOLE [Concomitant]
  5. AMLODIPINE [Concomitant]
  6. LEVOTHYROXINE SODIUM [Concomitant]
  7. GABAPENTIN [Concomitant]
  8. CITALOPRAM [Concomitant]

REACTIONS (1)
  - Drug ineffective [Not Recovered/Not Resolved]
